FAERS Safety Report 7889536-9 (Version None)
Quarter: 2011Q4

REPORT INFORMATION
  Report Type: 
  Country: None (occurrence: None)
  Receive Date: 20111103
  Receipt Date: 20110523
  Transmission Date: 20120403
  Serious: Yes (Other)
  Sender: FDA-Public Use
  Company Number: US-BRISTOL-MYERS SQUIBB COMPANY-15296544

PATIENT
  Age: 42 Year
  Sex: Female

DRUGS (4)
  1. ADDERALL 5 [Concomitant]
  2. LIDOCAINE [Concomitant]
     Dosage: 0.6 OF 1PERCENT OF LIDOCAINE
     Dates: start: 20091223
  3. KENALOG-40 [Suspect]
     Indication: SWELLING FACE
     Dosage: K40 CC.02
     Route: 058
     Dates: start: 20091223
  4. MULTI-VITAMIN [Concomitant]

REACTIONS (4)
  - DEPRESSION [None]
  - INJECTION SITE ATROPHY [None]
  - SKIN DISCOLOURATION [None]
  - MASS [None]
